FAERS Safety Report 14946617 (Version 2)
Quarter: 2018Q2

REPORT INFORMATION
  Report Type: Report from Study
  Country: MX (occurrence: MX)
  Receive Date: 20180529
  Receipt Date: 20180611
  Transmission Date: 20180711
  Serious: Yes (Other)
  Sender: FDA-Public Use
  Company Number: PHHY2018MX009570

PATIENT
  Age: 67 Year
  Sex: Female
  Weight: 70 kg

DRUGS (3)
  1. CO-DIOVAN [Suspect]
     Active Substance: HYDROCHLOROTHIAZIDE\VALSARTAN
     Indication: HYPERTENSION
     Dosage: 1 DF (25 MG HYDROCHLOROTHIAZIDE AND 160 MG VALSARTAN), QD
     Route: 048
  2. METFORMIN [Concomitant]
     Active Substance: METFORMIN HYDROCHLORIDE
     Indication: DIABETES MELLITUS
     Dosage: 3 DF, QD (MORE THAN 2 YEARS)
     Route: 065
  3. AMLODIPINE [Concomitant]
     Active Substance: AMLODIPINE BESYLATE
     Indication: HYPERTENSION
     Dosage: 2 DF, QD (SINCE LONG TIME)
     Route: 065

REACTIONS (4)
  - Arrhythmia [Not Recovered/Not Resolved]
  - Upper limb fracture [Recovered/Resolved]
  - Mobility decreased [Recovering/Resolving]
  - Fatigue [Recovering/Resolving]

NARRATIVE: CASE EVENT DATE: 20150110
